FAERS Safety Report 8363420-9 (Version None)
Quarter: 2012Q2

REPORT INFORMATION
  Report Type: 
  Country: None (occurrence: None)
  Receive Date: 20120516
  Receipt Date: 20120514
  Transmission Date: 20120825
  Serious: Yes (Death)
  Sender: FDA-Public Use
  Company Number: US-PFIZER INC-2012117180

PATIENT
  Sex: Male

DRUGS (7)
  1. SUTENT [Suspect]
     Indication: RENAL CANCER
     Dosage: 50 MG, 1X/DAY
     Dates: start: 20120309
  2. LYRICA [Concomitant]
     Dosage: UNK
  3. LOPRESSOR [Concomitant]
     Dosage: UNK
  4. PROTONIX [Concomitant]
     Dosage: UNK
  5. ROBAXIN [Concomitant]
     Dosage: UNK
  6. OXYCODONE [Concomitant]
     Dosage: UNK
  7. DURAGESIC-100 [Concomitant]
     Dosage: UNK

REACTIONS (1)
  - DEATH [None]
